FAERS Safety Report 26126927 (Version 1)
Quarter: 2025Q4

REPORT INFORMATION
  Report Type: Spontaneous
  Country: US (occurrence: US)
  Receive Date: 20251205
  Receipt Date: 20251205
  Transmission Date: 20260118
  Serious: No
  Sender: NOVO NORDISK
  Company Number: US-NOVOPROD-1541848

PATIENT
  Age: 81 Year
  Sex: Male

DRUGS (1)
  1. NOVOLIN 70/30 [Suspect]
     Active Substance: INSULIN HUMAN
     Indication: Type 2 diabetes mellitus
     Dosage: 35 UNITS IN THE MORNING, 35 UNITS  IN THE EVENING
     Route: 058
     Dates: start: 2010

REACTIONS (3)
  - Eating disorder [Unknown]
  - Blood glucose fluctuation [Not Recovered/Not Resolved]
  - Product dose confusion [Unknown]

NARRATIVE: CASE EVENT DATE: 20250615
